FAERS Safety Report 7299355-2 (Version None)
Quarter: 2011Q1

REPORT INFORMATION
  Report Type: 
  Country: None (occurrence: None)
  Receive Date: 20110217
  Receipt Date: 20110209
  Transmission Date: 20110831
  Serious: Yes (Disabling)
  Sender: FDA-Public Use
  Company Number: A0912584A

PATIENT
  Sex: Male

DRUGS (5)
  1. CLONAZEPAM [Concomitant]
     Dosage: .5TAB AS REQUIRED
     Route: 065
  2. PROSCAR [Concomitant]
     Dosage: 5MG UNKNOWN
     Route: 065
     Dates: start: 20080101
  3. MALARONE [Suspect]
     Indication: MALARIA PROPHYLAXIS
     Dosage: 250MG TWICE PER DAY
     Route: 065
     Dates: start: 20100101
  4. NEXIUM [Concomitant]
     Dosage: 40MG UNKNOWN
     Route: 065
     Dates: start: 20040101
  5. NORVASC [Concomitant]
     Indication: HYPERTENSION
     Dosage: 7.5MG UNKNOWN
     Route: 065
     Dates: start: 20060101

REACTIONS (1)
  - BLINDNESS [None]
